FAERS Safety Report 13123241 (Version 3)
Quarter: 2018Q4

REPORT INFORMATION
  Report Type: Spontaneous
  Country: CA (occurrence: CA)
  Receive Date: 20170117
  Receipt Date: 20181019
  Transmission Date: 20190204
  Serious: Yes (Other)
  Sender: FDA-Public Use
  Company Number: CA-PFIZER INC-2017015412

PATIENT
  Age: 85 Year
  Sex: Female

DRUGS (9)
  1. CAPTOPRIL. [Suspect]
     Active Substance: CAPTOPRIL
     Indication: PALLIATIVE CARE
     Dosage: 6.25 MG, DAILY
     Route: 065
  2. HYDROMORPHONE HYDROCHLORIDE. [Suspect]
     Active Substance: HYDROMORPHONE HYDROCHLORIDE
     Indication: PALLIATIVE CARE
     Dosage: 24 MG, UNK (EQUAL TO MORPHINE 120 MG, EVERY 4 HOURS)
     Route: 048
  3. DEXAMETHASONE. [Concomitant]
     Active Substance: DEXAMETHASONE
     Indication: NEURALGIA
     Dosage: 10 MG, 2X/DAY (DURING DAY 6 OF THE ADMISSION)
  4. HYDROMORPHONE HYDROCHLORIDE. [Suspect]
     Active Substance: HYDROMORPHONE HYDROCHLORIDE
     Indication: NEURALGIA
     Dosage: 12 MG, UNK (HOURLY AS REQUIRED FOR BREAKTHROUGH PAIN)
     Route: 048
  5. CAPTOPRIL. [Suspect]
     Active Substance: CAPTOPRIL
     Indication: HYPERTENSION
     Dosage: 12.5 MG, 2X/DAY (DURING DAY 5) INCREASED
     Route: 048
  6. MEXILETINE [Concomitant]
     Active Substance: MEXILETINE
     Indication: NEURALGIA
     Dosage: 100 MG, 2X/DAY (DURING DAY 6 OF THE ADMISSION)
  7. HYDROMORPHONE HYDROCHLORIDE. [Suspect]
     Active Substance: HYDROMORPHONE HYDROCHLORIDE
     Indication: BONE PAIN
  8. CAPTOPRIL. [Suspect]
     Active Substance: CAPTOPRIL
     Indication: BLOOD PRESSURE INCREASED
     Dosage: 25 MG, 2X/DAY (ON DAY 8) INCREASED
  9. HYDROMORPHONE HYDROCHLORIDE. [Suspect]
     Active Substance: HYDROMORPHONE HYDROCHLORIDE
     Indication: ANALGESIC THERAPY

REACTIONS (3)
  - Cognitive disorder [Recovering/Resolving]
  - Coma [Recovering/Resolving]
  - Renal failure [Recovering/Resolving]
